FAERS Safety Report 17026743 (Version 1)
Quarter: 2019Q4

REPORT INFORMATION
  Report Type: Spontaneous
  Country: US (occurrence: US)
  Receive Date: 20191112
  Receipt Date: 20191112
  Transmission Date: 20200122
  Serious: Yes (Hospitalization)
  Sender: FDA-Public Use
  Company Number: None

PATIENT
  Age: 57 Year
  Sex: Female

DRUGS (10)
  1. SILDENAFIL. [Suspect]
     Active Substance: SILDENAFIL
     Indication: PULMONARY ARTERIAL HYPERTENSION
     Route: 048
     Dates: start: 20190113
  2. TORSEMIDE TAB 20 MG [Concomitant]
  3. GABAPENTIN CAP 100 MG [Concomitant]
     Active Substance: GABAPENTIN
  4. INCRUSE ELPT INH 62.5 MCG [Concomitant]
  5. PREDNISONE TAB 10 MG [Concomitant]
  6. SMZ/TMP DS TAB 800-160 [Concomitant]
     Active Substance: SULFAMETHOXAZOLE\TRIMETHOPRIM
  7. FUROSEMIDE TAB 20 MG [Concomitant]
  8. ASPIRIN LOW TAB 81 MG EC [Concomitant]
  9. PANTOPRAZOLE TAB 40 MG [Concomitant]
  10. DIGOXIN TAB 0.125 MG [Concomitant]

REACTIONS (2)
  - Headache [None]
  - Dizziness [None]
